FAERS Safety Report 5082702-X (Version None)
Quarter: 2006Q3

REPORT INFORMATION
  Report Type: 
  Country: None (occurrence: None)
  Receive Date: 20060817
  Receipt Date: 20060807
  Transmission Date: 20061208
  Serious: Yes (Death)
  Sender: FDA-Public Use
  Company Number: JP-BRISTOL-MYERS SQUIBB COMPANY-13473400

PATIENT
  Age: 31 Year
  Sex: Male

DRUGS (16)
  1. ARIPIPRAZOLE [Suspect]
     Indication: SCHIZOPHRENIA
     Dosage: 1 DOSAGE FORM = 6 MG/12 MG/24 MG FOR 1 WEEK, 3 WEEKS AND 6 DAYS RESPECTIVELY
     Route: 048
     Dates: start: 20060626, end: 20060729
  2. HALOPERIDOL [Concomitant]
  3. FLUPHENAZINE [Concomitant]
     Route: 048
  4. BIPERIDEN HYDROCHLORIDE TAB [Concomitant]
  5. LEVOMEPROMAZINE MALEATE [Concomitant]
  6. FLUNITRAZEPAM [Concomitant]
  7. SENNOSIDES [Concomitant]
     Route: 048
  8. PANTETHINE [Concomitant]
     Route: 048
  9. SENNA [Concomitant]
     Route: 048
  10. MAGNESIUM OXIDE [Concomitant]
     Route: 048
  11. PEROSPIRONE [Concomitant]
     Route: 048
  12. CARBAMAZEPINE [Concomitant]
     Route: 048
  13. RISPERIDONE [Concomitant]
     Route: 048
  14. SULTOPRIDE HCL [Concomitant]
     Route: 048
  15. ZOTEPINE [Concomitant]
     Route: 048
  16. PERICIAZINE [Concomitant]
     Route: 048

REACTIONS (1)
  - SUDDEN DEATH [None]
